FAERS Safety Report 11127133 (Version 3)
Quarter: 2017Q3

REPORT INFORMATION
  Report Type: Report from Study
  Country: US (occurrence: US)
  Receive Date: 20150521
  Receipt Date: 20170814
  Transmission Date: 20171127
  Serious: Yes (Death, Other)
  Sender: FDA-Public Use
  Company Number: US-ROCHE-1579503

PATIENT

DRUGS (6)
  1. OXALIPLATIN. [Suspect]
     Active Substance: OXALIPLATIN
     Indication: COLORECTAL CANCER METASTATIC
     Route: 042
  2. 5-FU [Suspect]
     Active Substance: FLUOROURACIL
     Route: 042
  3. 5-FU [Suspect]
     Active Substance: FLUOROURACIL
     Indication: COLORECTAL CANCER METASTATIC
     Route: 040
  4. BEVACIZUMAB. [Suspect]
     Active Substance: BEVACIZUMAB
     Indication: COLORECTAL CANCER METASTATIC
     Route: 042
  5. LEUCOVORIN. [Suspect]
     Active Substance: LEUCOVORIN
     Indication: COLORECTAL CANCER METASTATIC
     Route: 042
  6. HYDROXYCHLOROQUINE [Suspect]
     Active Substance: HYDROXYCHLOROQUINE
     Indication: COLORECTAL CANCER METASTATIC
     Route: 048

REACTIONS (8)
  - Myocardial infarction [Fatal]
  - Fatigue [Unknown]
  - Diarrhoea [Unknown]
  - Arrhythmia supraventricular [Unknown]
  - Embolism [Unknown]
  - Pulmonary embolism [Unknown]
  - Neutropenia [Unknown]
  - Decreased appetite [Unknown]
